FAERS Safety Report 10245982 (Version 1)
Quarter: 2014Q2

REPORT INFORMATION
  Report Type: Spontaneous
  Country: SI (occurrence: SI)
  Receive Date: 20140619
  Receipt Date: 20140619
  Transmission Date: 20141212
  Serious: Yes (Hospitalization, Disabling)
  Sender: FDA-Public Use
  Company Number: PHHY2014SI075068

PATIENT
  Age: 73 Year
  Sex: Female

DRUGS (9)
  1. TASIGNA [Suspect]
     Indication: CHRONIC MYELOID LEUKAEMIA
     Dosage: 400 MG, DAILY
     Route: 048
     Dates: start: 20130103, end: 20140318
  2. DIOVAN [Concomitant]
     Dosage: 160 MG, DAILY
  3. CONCOR [Concomitant]
     Dosage: 1.25 MG, DAILY
  4. ATORIS [Concomitant]
     Dosage: 20 MG, DAILY
  5. LACIPIL [Concomitant]
     Dosage: 6 MG, DAILY
  6. ALDACTONE [Concomitant]
     Dosage: 25 MG, DAILY
  7. DIUVER [Concomitant]
     Dosage: 10 MG, DAILY
  8. OLICARD [Concomitant]
     Dosage: 40 MG, DAILY
  9. PALEXIA [Concomitant]
     Dosage: 100 MG, DAILY
     Dates: start: 20140128

REACTIONS (1)
  - Gangrene [Unknown]
